FAERS Safety Report 4668579-2 (Version None)
Quarter: 2005Q2

REPORT INFORMATION
  Report Type: 
  Country: None (occurrence: None)
  Receive Date: 20050523
  Receipt Date: 20050404
  Transmission Date: 20051028
  Serious: Yes (Hospitalization, Other)
  Sender: FDA-Public Use
  Company Number: JP-BRISTOL-MYERS SQUIBB COMPANY-12926374

PATIENT
  Age: 60 Year
  Sex: Male
  Weight: 73 kg

DRUGS (6)
  1. MEVALOTIN [Suspect]
     Indication: HYPERLIPIDAEMIA
     Route: 048
     Dates: start: 20030326, end: 20030527
  2. ZANTAC [Suspect]
     Indication: PROPHYLAXIS AGAINST GASTROINTESTINAL ULCER
     Route: 048
     Dates: start: 20030408, end: 20030527
  3. PANALDINE [Suspect]
     Indication: ANGINA PECTORIS
     Route: 048
     Dates: start: 20030408, end: 20030522
  4. ALOSITOL [Suspect]
     Indication: GOUT
     Route: 048
     Dates: start: 20030411, end: 20030610
  5. BAYASPIRIN [Concomitant]
     Indication: ANGINA PECTORIS
     Dates: start: 20030326
  6. EVIPROSTAT [Concomitant]
     Indication: BENIGN PROSTATIC HYPERPLASIA
     Dates: start: 20030325

REACTIONS (2)
  - CORONARY ARTERIAL STENT INSERTION [None]
  - LIVER DISORDER [None]
